FAERS Safety Report 8530578-8 (Version None)
Quarter: 2012Q3

REPORT INFORMATION
  Report Type: 
  Country: None (occurrence: None)
  Receive Date: 20120703
  Receipt Date: 20120620
  Transmission Date: 20120928
  Serious: Yes (Hospitalization)
  Sender: FDA-Public Use
  Company Number: 2012032713

PATIENT
  Age: 4 Year
  Sex: Male

DRUGS (5)
  1. ACETAMINOPHEN [Concomitant]
  2. PRIVIGEN [Suspect]
     Indication: KAWASAKI'S DISEASE
     Dosage: 40 G QD, 40 G QD, INTRAVENOUS
     Route: 042
     Dates: start: 20120312, end: 20120312
  3. PRIVIGEN [Suspect]
     Indication: KAWASAKI'S DISEASE
     Dosage: 40 G QD, 40 G QD, INTRAVENOUS
     Route: 042
     Dates: start: 20120314, end: 20120314
  4. CODEINE SULFATE [Concomitant]
  5. ASPIRIN [Concomitant]

REACTIONS (4)
  - MENINGITIS ASEPTIC [None]
  - HAEMOLYTIC ANAEMIA [None]
  - THROMBOCYTOSIS [None]
  - PANCREATITIS [None]
